FAERS Safety Report 4333176-5 (Version None)
Quarter: 2004Q2

REPORT INFORMATION
  Report Type: 
  Country: None (occurrence: None)
  Receive Date: 20040402
  Receipt Date: 20040402
  Transmission Date: 20050107
  Serious: Yes (Life-Threatening, Hospitalization, Disabling, Other)
  Sender: FDA-Public Use
  Company Number: None

PATIENT
  Age: 33 Year
  Sex: Female
  Weight: 58.9676 kg

DRUGS (3)
  1. ST. JOHNS WART [Suspect]
     Indication: FATIGUE
     Dosage: STANDARD DOSE 3 CAP QD PO
     Route: 048
     Dates: start: 19980501, end: 19981101
  2. BUSPAR [Suspect]
     Indication: ANXIETY
     Dosage: 30 MG QD PO
     Route: 048
     Dates: start: 19980601, end: 19981101
  3. ADDERALL 10 [Suspect]
     Indication: ATTENTION DEFICIT/HYPERACTIVITY DISORDER
     Dosage: 30 MG QD PO
     Route: 048
     Dates: start: 19980601, end: 19981101

REACTIONS (4)
  - BACK PAIN [None]
  - DYSMENORRHOEA [None]
  - MENSTRUATION IRREGULAR [None]
  - PANIC ATTACK [None]
